FAERS Safety Report 10825846 (Version 1)
Quarter: 2015Q1

REPORT INFORMATION
  Report Type: Spontaneous
  Country: TH (occurrence: TH)
  Receive Date: 20150219
  Receipt Date: 20150219
  Transmission Date: 20150721
  Serious: Yes (Death)
  Sender: FDA-Public Use
  Company Number: TH-CIPLA LTD.-2015TH01120

PATIENT

DRUGS (4)
  1. TERBINAFINE [Suspect]
     Active Substance: TERBINAFINE
     Indication: PYTHIUM INSIDIOSUM INFECTION
  2. VACCINE [Suspect]
     Active Substance: UNSPECIFIED INGREDIENT
     Indication: PYTHIUM INSIDIOSUM INFECTION
  3. DEFEROXAMINE [Suspect]
     Active Substance: DEFEROXAMINE\DEFEROXAMINE MESYLATE
     Indication: PYTHIUM INSIDIOSUM INFECTION
  4. ITRACONAZOLE. [Suspect]
     Active Substance: ITRACONAZOLE
     Indication: PYTHIUM INSIDIOSUM INFECTION

REACTIONS (1)
  - Death [Fatal]
